FAERS Safety Report 5353298-X (Version None)
Quarter: 2007Q2

REPORT INFORMATION
  Report Type: 
  Country: None (occurrence: None)
  Receive Date: 20070518
  Receipt Date: 20070228
  Transmission Date: 20071010
  Serious: No
  Sender: FDA-Public Use
  Company Number: TPA2007A00517

PATIENT
  Age: 50 Year
  Sex: Male
  Weight: 117.9352 kg

DRUGS (6)
  1. ROZEREM [Suspect]
     Indication: INSOMNIA
     Dosage: 8 MG, QHS, PER ORAL
     Route: 048
     Dates: start: 20070227
  2. LEXIVA [Concomitant]
  3. TRUVADA (ALL OTHER THERAPEUTIC PRODUCTS) [Concomitant]
  4. FLEXERIL [Concomitant]
  5. HYDROCODONE (HYDROCODONE) [Concomitant]
  6. BEFIZAR (ALL OTHER THERAPEUTIC PRODUCTS) [Concomitant]

REACTIONS (4)
  - DYSPNOEA [None]
  - HEADACHE [None]
  - HYPERHIDROSIS [None]
  - INITIAL INSOMNIA [None]
